FAERS Safety Report 7524911-3 (Version None)
Quarter: 2011Q2

REPORT INFORMATION
  Report Type: 
  Country: None (occurrence: None)
  Receive Date: 20110606
  Receipt Date: 20110523
  Transmission Date: 20111010
  Serious: Yes (Hospitalization)
  Sender: FDA-Public Use
  Company Number: US-BAYER-2011-031915

PATIENT
  Age: 62 Year
  Sex: Male

DRUGS (16)
  1. ORPHENADRINE CITRATE [Concomitant]
     Dosage: DAILY DOSE 100 MG
     Dates: start: 20070101
  2. NEXAVAR [Suspect]
     Indication: HEPATIC NEOPLASM MALIGNANT
     Dosage: DAILY DOSE 800 MG
     Route: 048
     Dates: start: 20091120, end: 20110214
  3. ACETAMINOPHEN [Concomitant]
     Dosage: DAILY DOSE 325 MG
     Dates: start: 20070101
  4. CHANTIX [Concomitant]
     Dosage: DAILY DOSE .5 MG
     Dates: start: 20090101
  5. ALBUTEROL SULFATE AUTOHALER [Concomitant]
     Dosage: UNK
     Route: 053
     Dates: start: 20060101
  6. TRAMADOL HCL [Concomitant]
     Dosage: DAILY DOSE 50 MG
     Dates: start: 20070101
  7. ADVAIR DISKUS 100/50 [Concomitant]
     Dosage: UNK
     Dates: start: 20060101
  8. ASPIRIN [Concomitant]
     Dosage: DAILY DOSE 81 MG
     Dates: start: 20090909
  9. EYE DROPS [Concomitant]
     Dosage: 1-2 DROPS
     Dates: start: 20090801
  10. FUROSEMIDE [Concomitant]
     Dosage: DAILY DOSE 40 MG
     Dates: start: 20030901
  11. LEVOTHYROXINE SODIUM [Concomitant]
     Dosage: DAILY DOSE 25 MCG/24HR
     Dates: start: 20040101
  12. METOPROLOL TARTRATE [Concomitant]
     Dosage: DAILY DOSE 25 MG
     Dates: start: 20030901
  13. AZITHROMYCIN [Concomitant]
     Dosage: UNK
     Dates: start: 20091201
  14. SKELAXIN [Concomitant]
     Dosage: DAILY DOSE 800 MG
     Dates: start: 20090101
  15. CYCLOBENZAPRINE HYDROCHLORIDE [Concomitant]
     Dosage: DAILY DOSE 10 MG
     Dates: start: 20090101
  16. OMEPRAZOLE [Concomitant]
     Dosage: UNK, 20 MG
     Dates: start: 20090101

REACTIONS (3)
  - MUSCULAR WEAKNESS [None]
  - SKIN ULCER [None]
  - THROMBOCYTOPENIA [None]
